FAERS Safety Report 16845900 (Version 1)
Quarter: 2019Q3

REPORT INFORMATION
  Report Type: Spontaneous
  Country: US (occurrence: US)
  Receive Date: 20190924
  Receipt Date: 20190924
  Transmission Date: 20191005
  Serious: No
  Sender: FDA-Public Use
  Company Number: US-ASSERTIO THERAPEUTICS, INC.-US-2019DEP000606

PATIENT
  Sex: Female

DRUGS (1)
  1. GRALISE [Suspect]
     Active Substance: GABAPENTIN
     Indication: MIGRAINE WITHOUT AURA
     Dosage: 1800 MG, QD
     Route: 048

REACTIONS (4)
  - Cough [Recovered/Resolved]
  - Product use in unapproved indication [Unknown]
  - Asthma [Recovered/Resolved]
  - Malaise [Recovered/Resolved]

NARRATIVE: CASE EVENT DATE: 2019
